FAERS Safety Report 8565562-1 (Version None)
Quarter: 2012Q3

REPORT INFORMATION
  Report Type: 
  Country: None (occurrence: None)
  Receive Date: 20120803
  Receipt Date: 20120725
  Transmission Date: 20120928
  Serious: Yes (Other)
  Sender: FDA-Public Use
  Company Number: US-JNJFOC-20120800189

PATIENT
  Sex: Male
  Weight: 106.6 kg

DRUGS (2)
  1. UNKNOWN MEDICATION [Concomitant]
     Indication: BREAKTHROUGH PAIN
     Route: 048
     Dates: start: 20120622
  2. FENTANYL-100 [Suspect]
     Indication: PROCEDURAL PAIN
     Route: 062
     Dates: start: 20120622

REACTIONS (4)
  - WRONG TECHNIQUE IN DRUG USAGE PROCESS [None]
  - ABNORMAL LOSS OF WEIGHT [None]
  - PRODUCT QUALITY ISSUE [None]
  - OFF LABEL USE [None]
